FAERS Safety Report 21765806 (Version 1)
Quarter: 2022Q4

REPORT INFORMATION
  Report Type: Spontaneous
  Country: SV (occurrence: SV)
  Receive Date: 20221222
  Receipt Date: 20221222
  Transmission Date: 20230112
  Serious: Yes (Other)
  Sender: FDA-Public Use
  Company Number: SV-JNJFOC-20221247128

PATIENT
  Age: 21 Year
  Sex: Male

DRUGS (3)
  1. SPRAVATO [Suspect]
     Active Substance: ESKETAMINE
     Indication: Depression
     Dosage: WEEK 1 TO 4
     Dates: start: 20220823
  2. SPRAVATO [Suspect]
     Active Substance: ESKETAMINE
     Indication: Suicide attempt
     Dosage: WEEK 4 TO 8
  3. SPRAVATO [Suspect]
     Active Substance: ESKETAMINE
     Dosage: WEEK 9 ONWARDS

REACTIONS (2)
  - Depression suicidal [Unknown]
  - Treatment failure [Unknown]

NARRATIVE: CASE EVENT DATE: 20220101
